FAERS Safety Report 4942651-1 (Version None)
Quarter: 2006Q1

REPORT INFORMATION
  Report Type: 
  Country: None (occurrence: None)
  Receive Date: 20060308
  Receipt Date: 20060302
  Transmission Date: 20060701
  Serious: Yes (Hospitalization, Disabling, Other)
  Sender: FDA-Public Use
  Company Number: 200513541GDS

PATIENT
  Age: 30 Year
  Sex: Female

DRUGS (13)
  1. AVELOX [Suspect]
     Indication: PNEUMONIA
     Dosage: 400 MG, TOTAL DAILY, INTRAVENOUS
     Route: 042
     Dates: start: 20050901, end: 20050905
  2. AVELOX [Suspect]
     Indication: PNEUMONIA
     Dosage: 400 MG, QD, ORAL
     Route: 048
     Dates: start: 20050906
  3. TEGRETOL [Concomitant]
  4. CEFOTETAN [Concomitant]
  5. ZITHROMAX [Concomitant]
  6. CLAFORAN [Concomitant]
  7. FLAGYL [Concomitant]
  8. HEPARIN [Concomitant]
  9. BUSCOPAN [Concomitant]
  10. TORADOL [Concomitant]
  11. QUESTRAN [Concomitant]
  12. TIAZAC [Concomitant]
  13. ATIVAN [Concomitant]

REACTIONS (8)
  - ALLODYNIA [None]
  - DYSAESTHESIA [None]
  - HYPOAESTHESIA [None]
  - NEURALGIA [None]
  - NEUROPATHY PERIPHERAL [None]
  - PAIN [None]
  - PARAESTHESIA [None]
  - WEIGHT DECREASED [None]
